FAERS Safety Report 24671456 (Version 1)
Quarter: 2024Q4

REPORT INFORMATION
  Report Type: Spontaneous
  Country: US (occurrence: US)
  Receive Date: 20241127
  Receipt Date: 20241127
  Transmission Date: 20250114
  Serious: No
  Sender: PFIZER
  Company Number: US-PFIZER INC-PV202400153079

PATIENT
  Age: 51 Year
  Sex: Female

DRUGS (1)
  1. RUXIENCE [Suspect]
     Active Substance: RITUXIMAB-PVVR
     Indication: Rheumatoid arthritis
     Dosage: ONLY DOSE, SINGLE
     Route: 042
     Dates: start: 202406, end: 202406

REACTIONS (3)
  - Tachycardia [Recovered/Resolved]
  - Feeling jittery [Unknown]
  - Feeling hot [Unknown]

NARRATIVE: CASE EVENT DATE: 20240601
